FAERS Safety Report 6316628-8 (Version None)
Quarter: 2009Q3

REPORT INFORMATION
  Report Type: 
  Country: None (occurrence: None)
  Receive Date: 20090820
  Receipt Date: 20090814
  Transmission Date: 20100115
  Serious: Yes (Other)
  Sender: FDA-Public Use
  Company Number: US-ASTRAZENECA-2009SE08421

PATIENT
  Age: 54 Year
  Sex: Male
  Weight: 90.7 kg

DRUGS (8)
  1. CRESTOR [Suspect]
     Route: 048
  2. DILTIAZEM [Concomitant]
  3. FUROSEMIDE [Concomitant]
  4. METOPROLOL [Concomitant]
  5. ALPRAZOLAM [Concomitant]
  6. POTASSIUM CHLORIDE [Concomitant]
  7. HYDROCODONE [Concomitant]
  8. TRAMADOL [Concomitant]

REACTIONS (3)
  - CORONARY ARTERIAL STENT INSERTION [None]
  - LUNG NEOPLASM MALIGNANT [None]
  - THROMBOSIS [None]
